FAERS Safety Report 9915175 (Version 1)
Quarter: 2014Q1

REPORT INFORMATION
  Report Type: Spontaneous
  Country: CA (occurrence: CA)
  Receive Date: 20140220
  Receipt Date: 20140220
  Transmission Date: 20141002
  Serious: Yes (Hospitalization)
  Sender: FDA-Public Use
  Company Number: CA-009507513-1402CAN008933

PATIENT
  Age: 50 Year
  Sex: Male

DRUGS (1)
  1. EMEND [Suspect]
     Dosage: UNK UNK, QD
     Route: 048

REACTIONS (2)
  - Small intestinal obstruction [Unknown]
  - Dehydration [Unknown]
